FAERS Safety Report 7898266-9 (Version None)
Quarter: 2011Q4

REPORT INFORMATION
  Report Type: 
  Country: None (occurrence: None)
  Receive Date: 20111107
  Receipt Date: 20111031
  Transmission Date: 20120403
  Serious: Yes (Hospitalization, Other)
  Sender: FDA-Public Use
  Company Number: JP-GLAXOSMITHKLINE-B0755288A

PATIENT
  Age: 89 Year
  Sex: Female

DRUGS (2)
  1. VALTREX [Suspect]
     Indication: HERPES ZOSTER
     Dosage: 3000MG PER DAY
     Route: 048
     Dates: start: 20110611
  2. UNKNOWN DRUG [Suspect]
     Indication: HERPES ZOSTER
     Dosage: 120MG PER DAY
     Route: 048
     Dates: start: 20110611

REACTIONS (6)
  - DECREASED APPETITE [None]
  - DEHYDRATION [None]
  - RENAL FAILURE ACUTE [None]
  - NEUROLOGICAL SYMPTOM [None]
  - DYSKINESIA [None]
  - DISORIENTATION [None]
